FAERS Safety Report 4301784-3 (Version None)
Quarter: 2004Q1

REPORT INFORMATION
  Report Type: 
  Country: None (occurrence: None)
  Receive Date: 20040126
  Receipt Date: 20031002
  Transmission Date: 20041129
  Serious: No
  Sender: FDA-Public Use
  Company Number: USA031048887

PATIENT
  Age: 42 Year
  Sex: Female

DRUGS (7)
  1. PROZAC [Suspect]
     Dosage: 60 MG
  2. STRATTERA [Suspect]
     Dosage: 40 MG/DAY
     Dates: start: 20030701
  3. FENTANYL [Concomitant]
  4. DURAGESIC [Concomitant]
  5. LORCET-HD [Concomitant]
  6. ESTRATEST [Concomitant]
  7. XANAX [Concomitant]

REACTIONS (2)
  - MITRAL VALVE INCOMPETENCE [None]
  - MOOD SWINGS [None]
